FAERS Safety Report 16097851 (Version 2)
Quarter: 2019Q1

REPORT INFORMATION
  Report Type: Report from Study
  Country: US (occurrence: US)
  Receive Date: 20190320
  Receipt Date: 20190325
  Transmission Date: 20190418
  Serious: No
  Sender: FDA-Public Use
  Company Number: PHEH2019US012227

PATIENT
  Sex: Male

DRUGS (1)
  1. AFINITOR DISPERZ [Suspect]
     Active Substance: EVEROLIMUS
     Indication: EPILEPSY
     Dosage: 3 MG, QD
     Route: 048
     Dates: start: 20190225

REACTIONS (1)
  - Nasopharyngitis [Recovering/Resolving]
